FAERS Safety Report 6703389-3 (Version None)
Quarter: 2010Q2

REPORT INFORMATION
  Report Type: 
  Country: None (occurrence: None)
  Receive Date: 20100430
  Receipt Date: 20100423
  Transmission Date: 20101027
  Serious: Yes (Death, Other)
  Sender: FDA-Public Use
  Company Number: US-TEVA-232378USA

PATIENT
  Sex: Female

DRUGS (1)
  1. ADDERALL 10 [Suspect]
     Dates: end: 20070201

REACTIONS (3)
  - INTESTINAL OBSTRUCTION [None]
  - METASTATIC UTERINE CANCER [None]
  - UTERINE CANCER [None]
